FAERS Safety Report 19232734 (Version 1)
Quarter: 2021Q2

REPORT INFORMATION
  Report Type: Spontaneous
  Country: IT (occurrence: IT)
  Receive Date: 20210507
  Receipt Date: 20210507
  Transmission Date: 20210717
  Serious: Yes (Other)
  Sender: FDA-Public Use
  Company Number: IT-US-PROVELL PHARMACEUTICALS LLC-9233049

PATIENT
  Age: 60 Year
  Sex: Female

DRUGS (2)
  1. EUTIROX [Suspect]
     Active Substance: LEVOTHYROXINE SODIUM
     Dosage: EUTHYROX 75 MCG (MONDAY TO SATURDAY) AND BIMONTHLY EUTHYROX 100 MCG (ONLY ON SUNDAYS)
  2. EUTIROX [Suspect]
     Active Substance: LEVOTHYROXINE SODIUM
     Indication: POST PROCEDURAL HYPOTHYROIDISM
     Dosage: FOR MANY YEARS
     Dates: start: 2003

REACTIONS (5)
  - Thyroid function test abnormal [Unknown]
  - Intentional product use issue [Unknown]
  - Blood pressure abnormal [Recovering/Resolving]
  - Palpitations [Recovering/Resolving]
  - Expired product administered [Unknown]

NARRATIVE: CASE EVENT DATE: 20210411
